FAERS Safety Report 10763104 (Version 1)
Quarter: 2015Q1

REPORT INFORMATION
  Report Type: Spontaneous
  Country: BR (occurrence: BR)
  Receive Date: 20150204
  Receipt Date: 20150204
  Transmission Date: 20150721
  Serious: Yes (Hospitalization, Other)
  Sender: FDA-Public Use
  Company Number: BR-ASTRAZENECA-2015SE10241

PATIENT
  Age: 928 Month
  Sex: Female
  Weight: 68 kg

DRUGS (10)
  1. TYLEX [Concomitant]
     Active Substance: ACETAMINOPHEN\CODEINE PHOSPHATE
     Indication: FIBROMYALGIA
     Route: 048
     Dates: start: 201411
  2. LYRICA [Concomitant]
     Active Substance: PREGABALIN
     Indication: FIBROMYALGIA
     Route: 048
     Dates: start: 201411
  3. ATACAND HCT [Suspect]
     Active Substance: CANDESARTAN CILEXETIL\HYDROCHLOROTHIAZIDE
     Indication: HYPERTENSION
     Dosage: 8/12,5 MG
     Route: 048
  4. ATACAND [Suspect]
     Active Substance: CANDESARTAN CILEXETIL
     Indication: HYPERTENSION
     Dosage: 8 MG
     Route: 048
     Dates: start: 201411, end: 201411
  5. ATACAND COMB [Suspect]
     Active Substance: CANDESARTAN CILEXETIL\FELODIPINE
     Indication: HYPERTENSION
     Dosage: 16/2,5 MG
     Route: 048
  6. GABAPENTIN. [Concomitant]
     Active Substance: GABAPENTIN
     Indication: FIBROMYALGIA
     Route: 048
     Dates: start: 201411
  7. ATACAND HCT [Suspect]
     Active Substance: CANDESARTAN CILEXETIL\HYDROCHLOROTHIAZIDE
     Indication: HYPERTENSION
     Dosage: 8/12,5 MG
     Route: 048
  8. CYMBALTA [Concomitant]
     Active Substance: DULOXETINE HYDROCHLORIDE
     Indication: FIBROMYALGIA
     Route: 048
     Dates: start: 201411
  9. OXYCONTIN [Concomitant]
     Active Substance: OXYCODONE HYDROCHLORIDE
     Indication: FIBROMYALGIA
     Route: 048
     Dates: start: 201411
  10. SEROQUEL [Suspect]
     Active Substance: QUETIAPINE FUMARATE
     Indication: ANALGESIC THERAPY
     Route: 048
     Dates: start: 20150128

REACTIONS (9)
  - Erysipelas [Recovered/Resolved]
  - Blood pressure fluctuation [Recovered/Resolved]
  - Headache [Recovered/Resolved]
  - Dizziness [Recovered/Resolved]
  - Fibromyalgia [Unknown]
  - Nausea [Recovered/Resolved]
  - Medication error [Recovered/Resolved]
  - Product use issue [Not Recovered/Not Resolved]
  - Thrombosis [Unknown]

NARRATIVE: CASE EVENT DATE: 201411
